FAERS Safety Report 12601677 (Version 1)
Quarter: 2016Q3

REPORT INFORMATION
  Report Type: Spontaneous
  Country: US (occurrence: None)
  Receive Date: 20160727
  Receipt Date: 20160727
  Transmission Date: 20161109
  Serious: Yes (Hospitalization)
  Sender: FDA-Public Use
  Company Number: None

PATIENT
  Age: 76 Year
  Sex: Male

DRUGS (10)
  1. RIVAROXABAN [Suspect]
     Active Substance: RIVAROXABAN
     Indication: DEEP VEIN THROMBOSIS
     Route: 048
     Dates: start: 20160426
  2. DULOXETINE. [Concomitant]
     Active Substance: DULOXETINE
  3. LANSOPRAZOLE. [Concomitant]
     Active Substance: LANSOPRAZOLE
  4. MECLIZINE [Concomitant]
     Active Substance: MECLIZINE HYDROCHLORIDE
  5. PYRIDOXINE [Concomitant]
     Active Substance: PYRIDOXINE
  6. SIMVASTATIN. [Concomitant]
     Active Substance: SIMVASTATIN
  7. MULTIVITAMIN [Concomitant]
     Active Substance: VITAMINS
  8. PEG [Concomitant]
     Active Substance: POLYETHYLENE GLYCOLS
  9. MESALAMINE. [Concomitant]
     Active Substance: MESALAMINE
  10. ONDANSETRON [Concomitant]
     Active Substance: ONDANSETRON

REACTIONS (1)
  - Haemoptysis [None]

NARRATIVE: CASE EVENT DATE: 20160426
